FAERS Safety Report 20495604 (Version 1)
Quarter: 2022Q1

REPORT INFORMATION
  Report Type: Report from Study
  Country: US (occurrence: US)
  Receive Date: 20220221
  Receipt Date: 20220221
  Transmission Date: 20220423
  Serious: Yes (Other)
  Sender: FDA-Public Use
  Company Number: US-ABBVIE-22K-163-4279100-00

PATIENT
  Sex: Female

DRUGS (1)
  1. HUMIRA [Suspect]
     Active Substance: ADALIMUMAB
     Indication: Psoriatic arthropathy
     Dosage: CITRATE FREE
     Route: 058

REACTIONS (11)
  - Systemic lupus erythematosus [Recovering/Resolving]
  - Systemic lupus erythematosus [Recovering/Resolving]
  - Joint swelling [Unknown]
  - Fatigue [Unknown]
  - Hypersomnia [Unknown]
  - Inflammation [Unknown]
  - Injection site warmth [Recovering/Resolving]
  - Sleep disorder [Unknown]
  - Pain [Unknown]
  - Injection site pruritus [Recovering/Resolving]
  - Injection site rash [Recovering/Resolving]
